FAERS Safety Report 9126747 (Version 1)
Quarter: 2013Q1

REPORT INFORMATION
  Report Type: Spontaneous
  Country: DK (occurrence: DK)
  Receive Date: 20130228
  Receipt Date: 20130228
  Transmission Date: 20140127
  Serious: Yes (Hospitalization, Disabling)
  Sender: FDA-Public Use
  Company Number: DK-BAYER-2013-023476

PATIENT
  Age: 33 Year
  Sex: Female

DRUGS (4)
  1. YASMIN [Suspect]
     Indication: CONTRACEPTION
     Route: 048
     Dates: start: 20110630
  2. YASMIN [Suspect]
     Indication: POLYCYSTIC OVARIES
  3. CIPRALEX [Concomitant]
  4. SIMVASTATIN [Concomitant]

REACTIONS (7)
  - Cerebrovascular accident [Recovered/Resolved with Sequelae]
  - Hypoaesthesia [Recovered/Resolved]
  - Dizziness [Recovered/Resolved]
  - Disturbance in attention [Not Recovered/Not Resolved]
  - Memory impairment [Not Recovered/Not Resolved]
  - Muscular weakness [Not Recovered/Not Resolved]
  - Coordination abnormal [Not Recovered/Not Resolved]
